FAERS Safety Report 4829346-X (Version None)
Quarter: 2005Q4

REPORT INFORMATION
  Report Type: 
  Country: None (occurrence: None)
  Receive Date: 20051115
  Receipt Date: 20051115
  Transmission Date: 20060501
  Serious: No
  Sender: FDA-Public Use
  Company Number: None

PATIENT
  Sex: Male
  Weight: 101.6057 kg

DRUGS (8)
  1. LISINOPRIL [Suspect]
     Indication: HYPERTENSION
     Dosage: 40MG  -2 TABLETS-  DAILY  PO
     Route: 048
     Dates: start: 20050418, end: 20050727
  2. METOPROLOL  SA [Concomitant]
  3. HYDROCHLOROTHIAZIDE [Concomitant]
  4. CLOPIDOGREL BISULFATE [Concomitant]
  5. ASPIRIN [Concomitant]
  6. FELODIPINE [Concomitant]
  7. IBUPROFEN [Concomitant]
  8. ALPRAZOLAM [Concomitant]

REACTIONS (3)
  - CHEST PAIN [None]
  - DRUG ADMINISTRATION ERROR [None]
  - TACHYCARDIA [None]
